FAERS Safety Report 7750951-5 (Version None)
Quarter: 2011Q3

REPORT INFORMATION
  Report Type: 
  Country: None (occurrence: None)
  Receive Date: 20110914
  Receipt Date: 20110905
  Transmission Date: 20111222
  Serious: Yes (Hospitalization)
  Sender: FDA-Public Use
  Company Number: FR-ELI_LILLY_AND_COMPANY-FR201109001063

PATIENT
  Sex: Female
  Weight: 53 kg

DRUGS (5)
  1. LANTUS [Concomitant]
     Indication: TYPE 1 DIABETES MELLITUS
     Dosage: 20 IU, QD
     Route: 058
  2. ATORVASTATIN CALCIUM [Concomitant]
     Dosage: 20 MG, QD
  3. ASPIRIN [Concomitant]
     Dosage: 75 DF, QD
  4. HUMALOG [Suspect]
     Indication: TYPE 1 DIABETES MELLITUS
     Dosage: 4 IU, QD
     Route: 058
  5. NOVORAPID [Concomitant]
     Dosage: 3 IU, OTHER

REACTIONS (5)
  - MALAISE [None]
  - FALL [None]
  - PERIORBITAL HAEMATOMA [None]
  - HYPOGLYCAEMIC UNCONSCIOUSNESS [None]
  - HYPOGLYCAEMIA [None]
